FAERS Safety Report 7246802-8 (Version None)
Quarter: 2011Q1

REPORT INFORMATION
  Report Type: 
  Country: None (occurrence: None)
  Receive Date: 20110127
  Receipt Date: 20110124
  Transmission Date: 20110831
  Serious: Yes (Other)
  Sender: FDA-Public Use
  Company Number: US-PFIZER INC-2011012626

PATIENT
  Sex: Female
  Weight: 72 kg

DRUGS (8)
  1. LEVSIN [Concomitant]
     Dosage: UNK
  2. KLONOPIN [Concomitant]
     Dosage: UNK
     Route: 048
  3. CHANTIX [Suspect]
     Indication: SMOKING CESSATION THERAPY
     Dosage: 0.5 MG, 1X/DAY
     Route: 048
     Dates: start: 20110111
  4. KLONOPIN [Concomitant]
     Indication: ANXIETY
     Dosage: UNK MG, UNK
  5. AMBIEN [Concomitant]
     Indication: SLEEP DISORDER
     Dosage: UNK
     Route: 048
  6. HYDROCODONE [Concomitant]
     Indication: AFFECTIVE DISORDER
     Dosage: 15 MG, 3X/DAY
     Route: 048
  7. EFFEXOR XR [Suspect]
     Indication: DEPRESSION
     Dosage: 150 MG, 1X/DAY
     Route: 048
     Dates: start: 20070201
  8. HALCION [Concomitant]
     Indication: SLEEP DISORDER
     Dosage: UNK
     Route: 048

REACTIONS (1)
  - JAW DISORDER [None]
